FAERS Safety Report 10264850 (Version 11)
Quarter: 2017Q3

REPORT INFORMATION
  Report Type: Report from Study
  Country: ES (occurrence: ES)
  Receive Date: 20140627
  Receipt Date: 20170831
  Transmission Date: 20171127
  Serious: Yes (Hospitalization)
  Sender: FDA-Public Use
  Company Number: ES-ROCHE-1423579

PATIENT
  Age: 68 Year
  Sex: Female
  Weight: 73 kg

DRUGS (19)
  1. OBINUTUZUMAB. [Suspect]
     Active Substance: OBINUTUZUMAB
     Dosage: ON DAY 1 OF EACH CYCLE (CYCLES 2-6)
     Route: 042
     Dates: start: 20140701, end: 20141202
  2. AERIUS (SPAIN) [Concomitant]
     Indication: PYREXIA
     Route: 065
     Dates: start: 20150404, end: 20150410
  3. BENDAMUSTINE [Suspect]
     Active Substance: BENDAMUSTINE
     Indication: CHRONIC LYMPHOCYTIC LEUKAEMIA
     Dosage: ON DAYS 2 AND 3 OF CYCLE 1 AND ON DAYS 1 AND 2 OF SUBSEQUENT CYCLES, AT 70 MILLIGRAMS PER SQUARE MET
     Route: 042
     Dates: start: 20140618, end: 20141203
  4. OMEPRAZOLE. [Concomitant]
     Active Substance: OMEPRAZOLE
     Route: 065
     Dates: start: 20151026
  5. AERIUS (SPAIN) [Concomitant]
     Indication: URINARY TRACT INFECTION BACTERIAL
  6. OMEPRAZOLE. [Concomitant]
     Active Substance: OMEPRAZOLE
     Route: 065
  7. SIMVASTATIN. [Concomitant]
     Active Substance: SIMVASTATIN
     Route: 065
  8. RILAST [Concomitant]
     Active Substance: BUDESONIDE\FORMOTEROL
     Route: 065
  9. ITRACONAZOLE. [Concomitant]
     Active Substance: ITRACONAZOLE
     Route: 065
     Dates: start: 20151026
  10. XALACOM [Concomitant]
     Active Substance: LATANOPROST\TIMOLOL MALEATE
  11. AERIUS (SPAIN) [Concomitant]
     Indication: BRONCHITIS
  12. BRETARIS [Concomitant]
     Active Substance: ACLIDINIUM BROMIDE
  13. RANITIDINE. [Concomitant]
     Active Substance: RANITIDINE
     Route: 065
  14. OBINUTUZUMAB. [Suspect]
     Active Substance: OBINUTUZUMAB
     Indication: CHRONIC LYMPHOCYTIC LEUKAEMIA
     Route: 042
     Dates: start: 20140617
  15. SIMVASTATIN. [Concomitant]
     Active Substance: SIMVASTATIN
     Route: 065
     Dates: start: 20151026
  16. GLICAZIDA [Concomitant]
     Active Substance: GLICLAZIDE
  17. PANTOPRAZOL [Concomitant]
     Active Substance: PANTOPRAZOLE SODIUM
  18. SYMBICORT [Concomitant]
     Active Substance: BUDESONIDE\FORMOTEROL FUMARATE DIHYDRATE
     Dosage: TURBUHALER , DOSE 4 INH
     Route: 065
     Dates: start: 20151026
  19. SINGULAIR [Concomitant]
     Active Substance: MONTELUKAST SODIUM

REACTIONS (4)
  - Bronchopulmonary aspergillosis [Recovered/Resolved]
  - Febrile neutropenia [Recovered/Resolved]
  - Bronchitis [Recovered/Resolved]
  - Febrile neutropenia [Recovered/Resolved with Sequelae]

NARRATIVE: CASE EVENT DATE: 20140622
